FAERS Safety Report 13323067 (Version 1)
Quarter: 2017Q1

REPORT INFORMATION
  Report Type: Report from Study
  Country: US (occurrence: US)
  Receive Date: 20170310
  Receipt Date: 20170310
  Transmission Date: 20170428
  Serious: Yes (Death, Hospitalization)
  Sender: FDA-Public Use
  Company Number: US-PFIZER INC-2016535924

PATIENT
  Age: 80 Year
  Sex: Male

DRUGS (3)
  1. SUTENT [Suspect]
     Active Substance: SUNITINIB MALATE
     Dosage: 50 MG, DAILY (QD)
     Route: 048
     Dates: start: 20170101, end: 20170128
  2. SUTENT [Suspect]
     Active Substance: SUNITINIB MALATE
     Dosage: 37.5 MG, 1X/DAY, (QD)
     Route: 048
     Dates: start: 20160925, end: 20170128
  3. SUTENT [Suspect]
     Active Substance: SUNITINIB MALATE
     Indication: RENAL CELL CARCINOMA
     Dosage: 37.5 MG, 1X/DAY, (QD)
     Route: 048
     Dates: start: 20160925, end: 20161231

REACTIONS (16)
  - Peripheral swelling [Unknown]
  - Oral pain [Unknown]
  - Blood magnesium decreased [Unknown]
  - Blood calcium decreased [Unknown]
  - Abdominal pain [Recovering/Resolving]
  - Asthenia [Unknown]
  - Alopecia [Unknown]
  - Swelling [Unknown]
  - Electrolyte imbalance [Unknown]
  - Tremor [Unknown]
  - Death [Fatal]
  - Hair colour changes [Unknown]
  - Rash [Unknown]
  - Weight increased [Unknown]
  - Nausea [Recovering/Resolving]
  - Oropharyngeal pain [Unknown]

NARRATIVE: CASE EVENT DATE: 20170301
